FAERS Safety Report 23736717 (Version 3)
Quarter: 2025Q1

REPORT INFORMATION
  Report Type: Spontaneous
  Country: US (occurrence: US)
  Receive Date: 20240412
  Receipt Date: 20250317
  Transmission Date: 20250409
  Serious: No
  Sender: PFIZER
  Company Number: US-PFIZER INC-202400084501

PATIENT
  Age: 14 Year
  Sex: Female

DRUGS (1)
  1. LITFULO [Suspect]
     Active Substance: RITLECITINIB TOSYLATE
     Indication: Alopecia areata
     Dates: start: 202403

REACTIONS (3)
  - Infection [Unknown]
  - Cardiac disorder [Unknown]
  - Mycoplasma infection [Unknown]

NARRATIVE: CASE EVENT DATE: 20240101
